FAERS Safety Report 4455601-1 (Version None)
Quarter: 2004Q3

REPORT INFORMATION
  Report Type: 
  Country: None (occurrence: None)
  Receive Date: 20040922
  Receipt Date: 20040803
  Transmission Date: 20050211
  Serious: Yes (Life-Threatening, Hospitalization)
  Sender: FDA-Public Use
  Company Number: 200417722GDDC

PATIENT
  Age: 83 Year

DRUGS (6)
  1. INDAPAMIDE [Suspect]
     Indication: ESSENTIAL HYPERTENSION
     Route: 048
  2. DILTIAZEM [Concomitant]
  3. TELMISARTAN [Concomitant]
  4. BETOPTIC [Concomitant]
  5. CORTIC [Concomitant]
  6. SIMVASTATIN [Concomitant]

REACTIONS (5)
  - BLOOD CREATINE PHOSPHOKINASE INCREASED [None]
  - CONFUSIONAL STATE [None]
  - DISORIENTATION [None]
  - HYPONATRAEMIA [None]
  - LOSS OF CONSCIOUSNESS [None]
